FAERS Safety Report 10753916 (Version 1)
Quarter: 2015Q1

REPORT INFORMATION
  Report Type: Spontaneous
  Country: JP (occurrence: None)
  Receive Date: 20150129
  Receipt Date: 20150129
  Transmission Date: 20150721
  Serious: Yes (Hospitalization)
  Sender: FDA-Public Use
  Company Number: 2014FE02958

PATIENT
  Age: 80 Year
  Sex: Male
  Weight: 57 kg

DRUGS (9)
  1. MUCOSOLVAN (AMBROXOL HYDROCHLORIDE) [Concomitant]
  2. BICALUTAMIDE. [Concomitant]
     Active Substance: BICALUTAMIDE
  3. LANIRAPID (METILDIGOXIN) [Concomitant]
  4. MAGMITT (MAGNESIUM OXIDE) [Concomitant]
     Active Substance: MAGNESIUM OXIDE
  5. GONAX (DEGARELIX) POWDER AND SOLVENT FOR SOLUTION FOR INJECTION, 80MG [Suspect]
     Active Substance: DEGARELIX
     Indication: PROSTATE CANCER
     Route: 058
     Dates: start: 20140408, end: 20141001
  6. TRAZENTA (LINAGLIPTIN) [Concomitant]
  7. LIOVEL (ALOGLIPTIN BENZOATE, PIOGLITAZONE HYDROCHLORIDE) [Concomitant]
  8. ALLOPURINOL. [Concomitant]
     Active Substance: ALLOPURINOL
  9. TOVIAZ [Concomitant]
     Active Substance: FESOTERODINE FUMARATE

REACTIONS (5)
  - Interstitial lung disease [None]
  - Injection site induration [None]
  - Injection site erythema [None]
  - Respiratory failure [None]
  - Renal impairment [None]

NARRATIVE: CASE EVENT DATE: 20141001
